FAERS Safety Report 7782049-4 (Version None)
Quarter: 2011Q3

REPORT INFORMATION
  Report Type: 
  Country: None (occurrence: None)
  Receive Date: 20110927
  Receipt Date: 20110113
  Transmission Date: 20111222
  Serious: No
  Sender: FDA-Public Use
  Company Number: US-BAYER-2011-005517

PATIENT
  Age: 31 Year

DRUGS (1)
  1. ULTRAVIST 150 [Suspect]
     Indication: COMPUTERISED TOMOGRAM
     Dosage: 135 ML, UNK
     Route: 042
     Dates: start: 20110113, end: 20110113

REACTIONS (3)
  - EYELID OEDEMA [None]
  - EYE PRURITUS [None]
  - ERYTHEMA [None]
